FAERS Safety Report 25662587 (Version 3)
Quarter: 2025Q3

REPORT INFORMATION
  Report Type: Spontaneous
  Country: GB (occurrence: GB)
  Receive Date: 20250811
  Receipt Date: 20250820
  Transmission Date: 20251020
  Serious: Yes (Death, Hospitalization)
  Sender: AMGEN
  Company Number: GB-AMGEN-GBRSP2025156898

PATIENT
  Age: 79 Year
  Sex: Male

DRUGS (1)
  1. ARANESP [Suspect]
     Active Substance: DARBEPOETIN ALFA
     Indication: Renal transplant
     Dosage: 80 MICROGRAM/0.4ML PFS 4, Q4WK
     Route: 058
     Dates: end: 20250811

REACTIONS (2)
  - Death [Fatal]
  - Malaise [Not Recovered/Not Resolved]

NARRATIVE: CASE EVENT DATE: 20250811
